FAERS Safety Report 16471394 (Version 2)
Quarter: 2019Q2

REPORT INFORMATION
  Report Type: Report from Study
  Country: DE (occurrence: DE)
  Receive Date: 20190624
  Receipt Date: 20190628
  Transmission Date: 20190711
  Serious: Yes (Hospitalization)
  Sender: FDA-Public Use
  Company Number: DE-SHIRE-DE201919958

PATIENT

DRUGS (3)
  1. TEDUGLUTIDE [Suspect]
     Active Substance: TEDUGLUTIDE
     Dosage: 2.13 MILLIGRAM, 1X/DAY:QD,TED DOSES PER WEEK 7, (DAILY DOSE 0.03 MG/KG)
     Route: 065
     Dates: start: 20190311
  2. TEDUGLUTIDE [Suspect]
     Active Substance: TEDUGLUTIDE
     Indication: SHORT-BOWEL SYNDROME
     Dosage: 4.25 MILLIGRAM, 1X/DAY:QD, TED DOSES PER WEEK 7 (DAILY DOSE 0.05 MG/KG)
     Route: 065
     Dates: start: 20190111, end: 20190310
  3. REMICADE [Concomitant]
     Active Substance: INFLIXIMAB
     Indication: CROHN^S DISEASE

REACTIONS (1)
  - Small intestinal obstruction [Not Recovered/Not Resolved]

NARRATIVE: CASE EVENT DATE: 201905
